FAERS Safety Report 13248448 (Version 1)
Quarter: 2017Q1

REPORT INFORMATION
  Report Type: Spontaneous
  Country: US (occurrence: US)
  Receive Date: 20170218
  Receipt Date: 20170218
  Transmission Date: 20170428
  Serious: No
  Sender: FDA-Public Use
  Company Number: US-ALLERGAN-1657077US

PATIENT
  Age: 5 Decade
  Sex: Male

DRUGS (3)
  1. GLUCO + CHONDROITIN [Concomitant]
     Indication: ARTHRALGIA
     Dosage: UNK UNK, QD
     Route: 048
  2. RESTASIS [Suspect]
     Active Substance: CYCLOSPORINE
     Indication: DRY EYE
     Dosage: 2 GTT, BID
     Route: 047
     Dates: start: 201602, end: 2016
  3. LIPITOR [Concomitant]
     Active Substance: ATORVASTATIN CALCIUM
     Indication: BLOOD CHOLESTEROL INCREASED
     Dosage: UNK UNK, QD
     Route: 048

REACTIONS (5)
  - Ocular hyperaemia [Recovered/Resolved]
  - Eye pain [Unknown]
  - Gait disturbance [Recovered/Resolved]
  - Foreign body sensation in eyes [Recovered/Resolved]
  - Eye discharge [Recovered/Resolved]

NARRATIVE: CASE EVENT DATE: 2016
